FAERS Safety Report 15772291 (Version 1)
Quarter: 2018Q4

REPORT INFORMATION
  Report Type: Spontaneous
  Country: JP (occurrence: JP)
  Receive Date: 20181228
  Receipt Date: 20181228
  Transmission Date: 20190205
  Serious: Yes (Other)
  Sender: FDA-Public Use
  Company Number: JP-PFIZER INC-2018531012

PATIENT
  Age: 19 Year
  Sex: Male

DRUGS (7)
  1. ONCOVIN [Concomitant]
     Active Substance: VINCRISTINE SULFATE
     Dosage: UNK
  2. CARBOPLATIN. [Concomitant]
     Active Substance: CARBOPLATIN
     Dosage: UNK
  3. CAMPTO [Suspect]
     Active Substance: IRINOTECAN
     Indication: MALIGNANT MEDIASTINAL NEOPLASM
     Dosage: UNK, 1X/DAY
     Route: 041
  4. EXAL [VINBLASTINE SULFATE] [Concomitant]
     Dosage: UNK
  5. ETOPOSIDE. [Concomitant]
     Active Substance: ETOPOSIDE
     Dosage: UNK
  6. CISPLATIN. [Concomitant]
     Active Substance: CISPLATIN
     Dosage: UNK
  7. IFOSFAMIDE. [Concomitant]
     Active Substance: IFOSFAMIDE
     Dosage: UNK

REACTIONS (2)
  - Second primary malignancy [Recovered/Resolved]
  - Myelodysplastic syndrome [Recovered/Resolved]
